FAERS Safety Report 9407528 (Version 1)
Quarter: 2013Q3

REPORT INFORMATION
  Report Type: Spontaneous
  Country: RU (occurrence: RU)
  Receive Date: 20130718
  Receipt Date: 20130718
  Transmission Date: 20140515
  Serious: Yes (Hospitalization)
  Sender: FDA-Public Use
  Company Number: RU-BAYER-2013-083346

PATIENT
  Sex: Female

DRUGS (1)
  1. YAZ [Suspect]
     Dosage: UNK

REACTIONS (5)
  - Thrombotic thrombocytopenic purpura [None]
  - Loss of consciousness [None]
  - Sopor [None]
  - General physical health deterioration [None]
  - Contraindication to medical treatment [None]
